FAERS Safety Report 8790622 (Version 1)
Quarter: 2012Q4

REPORT INFORMATION
  Report Type: Spontaneous
  Country: US (occurrence: None)
  Receive Date: 20120912
  Receipt Date: 20120912
  Transmission Date: 20130627
  Serious: Yes (Other)
  Sender: FDA-Public Use
  Company Number: None

PATIENT
  Age: 51 Year
  Sex: Male
  Weight: 79.38 kg

DRUGS (1)
  1. CIPRO [Suspect]
     Indication: TESTICULAR INFECTION
     Route: 048
     Dates: start: 20120815, end: 20120816

REACTIONS (4)
  - Pain [None]
  - Testicular pain [None]
  - Pain in extremity [None]
  - Abasia [None]
